FAERS Safety Report 15299000 (Version 1)
Quarter: 2018Q3

REPORT INFORMATION
  Report Type: Spontaneous
  Country: US (occurrence: US)
  Receive Date: 20180808
  Receipt Date: 20180808
  Transmission Date: 20181010
  Serious: No
  Sender: FDA-Public Use
  Company Number: None

PATIENT
  Age: 73 Year
  Sex: Female

DRUGS (16)
  1. GLUCOSAMINE CHONDROITIN [Concomitant]
     Active Substance: CHONDROITIN SULFATE (BOVINE)\GLUCOSAMINE HYDROCHLORIDE
  2. TYLENOL WITH CODEINE [Concomitant]
     Active Substance: ACETAMINOPHEN\CODEINE PHOSPHATE
  3. RANITIDINE. [Concomitant]
     Active Substance: RANITIDINE
  4. VITAMIN C [Concomitant]
     Active Substance: ASCORBIC ACID
  5. SALMON OIL [Concomitant]
     Active Substance: FISH OIL
  6. FLUTICASONE PROPIONATE AND SALMETEROL [Suspect]
     Active Substance: FLUTICASONE PROPIONATE\SALMETEROL XINAFOATE
     Indication: ASTHMA
     Dosage: ?          OTHER STRENGTH:113/14 UG/M;QUANTITY:1 PUFF(S);?
     Route: 048
     Dates: start: 20180719, end: 20180805
  7. XYZAL [Concomitant]
     Active Substance: LEVOCETIRIZINE DIHYDROCHLORIDE
  8. VITAMIN D [Concomitant]
     Active Substance: CHOLECALCIFEROL
  9. BLACK CHERRY EXTRACT [Concomitant]
  10. ANTI?ACIDS [Concomitant]
  11. THEOPHYLLINE [Concomitant]
     Active Substance: THEOPHYLLINE ANHYDROUS
  12. SALON PAS CAPSICUM [Concomitant]
  13. CALCIUM [Concomitant]
     Active Substance: CALCIUM
  14. MAGNESIUM [Concomitant]
     Active Substance: MAGNESIUM
  15. POTASSIUM [Concomitant]
     Active Substance: POTASSIUM
  16. VIT B COMPLEX [Concomitant]

REACTIONS (2)
  - Back pain [None]
  - Gait disturbance [None]

NARRATIVE: CASE EVENT DATE: 20180721
